FAERS Safety Report 5973129-4 (Version None)
Quarter: 2008Q4

REPORT INFORMATION
  Report Type: 
  Country: None (occurrence: None)
  Receive Date: 20081201
  Receipt Date: 20081119
  Transmission Date: 20090506
  Serious: Yes (Death, Hospitalization, Other)
  Sender: FDA-Public Use
  Company Number: US-AMGEN-US320263

PATIENT
  Sex: Female
  Weight: 86.3 kg

DRUGS (6)
  1. PROCRIT [Suspect]
     Indication: ANAEMIA OF MALIGNANT DISEASE
     Route: 065
     Dates: start: 20080801, end: 20081001
  2. UNSPECIFIED PAIN MEDICATION [Concomitant]
  3. UNSPECIFIED ANTIANXIETY AGENT [Concomitant]
  4. ANTIHYPERTENSIVES [Concomitant]
  5. SYNTHROID [Concomitant]
  6. POTASSIUM CHLORIDE [Concomitant]

REACTIONS (6)
  - BLOOD POTASSIUM DECREASED [None]
  - DEATH [None]
  - HAEMOGLOBIN DECREASED [None]
  - NEOPLASM PROGRESSION [None]
  - OEDEMA PERIPHERAL [None]
  - OPEN WOUND [None]
